FAERS Safety Report 9652819 (Version 1)
Quarter: 2013Q4

REPORT INFORMATION
  Report Type: Spontaneous
  Country: US (occurrence: None)
  Receive Date: 20131028
  Receipt Date: 20131028
  Transmission Date: 20140711
  Serious: Yes (Other)
  Sender: FDA-Public Use
  Company Number: None

PATIENT
  Age: 36 Year
  Sex: 0

DRUGS (1)
  1. RA FLU COLD DAY 8.3Z [Suspect]

REACTIONS (1)
  - Musculoskeletal disorder [None]
